FAERS Safety Report 13304990 (Version 1)
Quarter: 2017Q1

REPORT INFORMATION
  Report Type: Spontaneous
  Country: US (occurrence: US)
  Receive Date: 20170308
  Receipt Date: 20170308
  Transmission Date: 20170428
  Serious: No
  Sender: FDA-Public Use
  Company Number: US-PFIZER INC-2017011662

PATIENT
  Age: 64 Year
  Sex: Female

DRUGS (16)
  1. PROLIA [Concomitant]
     Active Substance: DENOSUMAB
     Dosage: UNK (IV GIVEN EVERY 6 MONTHS)
     Route: 058
  2. VITAMIN B COMPLEX [Concomitant]
     Active Substance: CYANOCOBALAMIN\DEXPANTHENOL\NIACINAMIDE\PYRIDOXINE HYDROCHLORIDE\RIBOFLAVIN 5^-PHOSPHATE SODIUM\THIAMINE HYDROCHLORIDE\VITAMIN B COMPLEX
     Dosage: UNK
     Route: 048
  3. PROBIOTIC [Concomitant]
     Active Substance: PROBIOTICS NOS
     Dosage: UNK
     Route: 048
  4. PARACETAMOL CODEINE [Concomitant]
     Active Substance: ACETAMINOPHEN\CODEINE PHOSPHATE
     Indication: PAIN
     Dosage: UNK UNK, AS NEEDED (CODEINE PHOSPHATE 12 MG/PARACETAMOL 120 MG)
     Route: 048
     Dates: start: 20160829
  5. MAGNESIUM [Concomitant]
     Active Substance: MAGNESIUM
     Dosage: UNK
     Route: 048
  6. TURMERIC [Concomitant]
     Active Substance: TURMERIC
     Dosage: UNK
     Route: 048
  7. PROLIA [Concomitant]
     Active Substance: DENOSUMAB
     Dosage: UNK
     Dates: start: 20150202
  8. FASLODEX [Concomitant]
     Active Substance: FULVESTRANT
     Dosage: UNK (EVERY 4 WEEKS)
     Route: 030
  9. CARAFATE [Concomitant]
     Active Substance: SUCRALFATE
     Dosage: 10 ML, 4X/DAY
     Route: 048
     Dates: start: 20160919
  10. CHILDRENS ADVIL [Concomitant]
     Active Substance: IBUPROFEN
     Indication: PAIN
     Dosage: UNK UNK, AS NEEDED (1-2 TSP Q6 HR)
     Dates: start: 20160830
  11. IBRANCE [Suspect]
     Active Substance: PALBOCICLIB
     Indication: BREAST CANCER FEMALE
     Dosage: 125 MG, CYCLIC [1 CAP. (WITH BREAKFAST) FOR 21 DAYS IN A.M. AT SAME TIME EACH DAY FOR 28 DAY CYCLE]
     Route: 048
     Dates: start: 20161229, end: 20170119
  12. TYLENOL [Concomitant]
     Active Substance: ACETAMINOPHEN
     Indication: PAIN
     Dosage: UNK UNK, AS NEEDED (15.6-31.3 MLS EVERY 6 HOURS)
     Route: 048
     Dates: start: 20160812
  13. CALCIUM CARBONATE W/MAGNESIUM CARBONATE [Concomitant]
     Dosage: UNK (CALCIUM CARBONATE 250 MG/MAGNESIUM CARBONATE 300 MG)
     Route: 048
  14. CHOLECALCIFEROL [Concomitant]
     Active Substance: CHOLECALCIFEROL
     Dosage: 1000 IU, UNK
     Route: 048
  15. MELATONIN [Concomitant]
     Active Substance: MELATONIN
     Dosage: 20 MG, 1X/DAY (NIGHTLY)
     Route: 048
  16. COQ10 [Concomitant]
     Active Substance: UBIDECARENONE
     Dosage: UNK
     Route: 048

REACTIONS (2)
  - Nasopharyngitis [Not Recovered/Not Resolved]
  - Rash [Unknown]
